FAERS Safety Report 4330628-9 (Version None)
Quarter: 2004Q2

REPORT INFORMATION
  Report Type: 
  Country: None (occurrence: None)
  Receive Date: 20040402
  Receipt Date: 20040322
  Transmission Date: 20050107
  Serious: Yes (Hospitalization)
  Sender: FDA-Public Use
  Company Number: JP-ROCHE-362245

PATIENT
  Age: 80 Year
  Sex: Male

DRUGS (1)
  1. PANALDINE [Suspect]
     Indication: CEREBRAL INFARCTION
     Route: 065
     Dates: start: 20020615

REACTIONS (2)
  - HYPERKERATOSIS [None]
  - RASH PRURITIC [None]
